FAERS Safety Report 6272317-X (Version None)
Quarter: 2009Q3

REPORT INFORMATION
  Report Type: 
  Country: None (occurrence: None)
  Receive Date: 20090715
  Receipt Date: 20090630
  Transmission Date: 20100115
  Serious: Yes (Hospitalization)
  Sender: FDA-Public Use
  Company Number: POMP-1000650

PATIENT
  Age: 3 Year
  Sex: Male
  Weight: 20.2 kg

DRUGS (3)
  1. MYOZYME [Suspect]
     Indication: GLYCOGEN STORAGE DISEASE TYPE II
     Dosage: 20 MG/KG, Q2W, INTRAVENOUS
     Route: 042
     Dates: start: 20060101
  2. PULMICORT (BUDESONIDE) INHALATION GAS [Concomitant]
  3. ALBUTEROL (SALBUTAMOL) INHALATION GAS [Concomitant]

REACTIONS (5)
  - APNOEA [None]
  - FAECAL INCONTINENCE [None]
  - LOSS OF CONSCIOUSNESS [None]
  - PALLOR [None]
  - UNRESPONSIVE TO STIMULI [None]
